FAERS Safety Report 18579280 (Version 1)
Quarter: 2020Q4

REPORT INFORMATION
  Report Type: Spontaneous
  Country: US (occurrence: US)
  Receive Date: 20201202
  Receipt Date: 20201202
  Transmission Date: 20210114
  Serious: Yes (Hospitalization)
  Sender: FDA-Public Use
  Company Number: None

PATIENT
  Age: 80 Year
  Sex: Male
  Weight: 96.16 kg

DRUGS (1)
  1. WARFARIN (WARFARIN NA 3MG TAB) [Suspect]
     Active Substance: WARFARIN SODIUM
     Indication: CARDIAC VALVE PROSTHESIS USER
     Dosage: ?          OTHER DOSE:3MG DAILY,EXCEPT1.; 1.5 MG MWF?
     Route: 048
     Dates: start: 20040114

REACTIONS (3)
  - Transient ischaemic attack [None]
  - International normalised ratio [None]
  - Cerebrovascular accident [None]

NARRATIVE: CASE EVENT DATE: 20200601
